FAERS Safety Report 4802909-3 (Version None)
Quarter: 2005Q4

REPORT INFORMATION
  Report Type: 
  Country: None (occurrence: None)
  Receive Date: 20051013
  Receipt Date: 20050928
  Transmission Date: 20060501
  Serious: Yes (Hospitalization, Other)
  Sender: FDA-Public Use
  Company Number: 2004-00012

PATIENT
  Age: 63 Year
  Sex: Female
  Weight: 81 kg

DRUGS (12)
  1. VELCADE [Suspect]
     Indication: MULTIPLE MYELOMA
     Dosage: SEE IMAGE
     Route: 042
     Dates: start: 20050504, end: 20050524
  2. VELCADE [Suspect]
     Indication: MULTIPLE MYELOMA
     Dosage: SEE IMAGE
     Route: 042
     Dates: start: 20040607
  3. DEXAMETHASONE [Suspect]
     Indication: MULTIPLE MYELOMA
     Dosage: 20.00 MG, ORAL
     Route: 048
     Dates: start: 20040517
  4. CYCLOPHOSPHAMIDE [Suspect]
     Indication: MULTIPLE MYELOMA
     Dosage: SEE IMAGE
     Route: 048
     Dates: start: 20040517
  5. CYCLOPHOSPHAMIDE [Suspect]
     Indication: MULTIPLE MYELOMA
     Dosage: SEE IMAGE
     Route: 048
     Dates: start: 20040607
  6. COTRIM FORTE (SULFAMETHAOXAZOLE, TRIMETHOPRIM) [Concomitant]
  7. XANEF (ENALAPRIL MALEATE) [Concomitant]
  8. CARVEDILOL [Concomitant]
  9. LEVOTHYROXINE SODIUM [Concomitant]
  10. PANTOPRAZOLE SODIUM [Concomitant]
  11. DIFLUCAN [Concomitant]
  12. FRAGMIN [Concomitant]

REACTIONS (18)
  - BLOOD CALCIUM DECREASED [None]
  - BLOOD CREATININE INCREASED [None]
  - BLOOD GLUCOSE INCREASED [None]
  - BLOOD POTASSIUM INCREASED [None]
  - BLOOD SODIUM DECREASED [None]
  - DIZZINESS [None]
  - EJECTION FRACTION DECREASED [None]
  - HAEMATOCRIT DECREASED [None]
  - HAEMOGLOBIN DECREASED [None]
  - HYPOTENSION [None]
  - MUCOSAL INFLAMMATION [None]
  - ORAL PAIN [None]
  - PANCREATITIS [None]
  - PERFORMANCE STATUS DECREASED [None]
  - PLATELET COUNT DECREASED [None]
  - PROTEIN TOTAL INCREASED [None]
  - RED BLOOD CELL COUNT DECREASED [None]
  - VENTRICULAR HYPOKINESIA [None]
